FAERS Safety Report 11840752 (Version 1)
Quarter: 2015Q4

REPORT INFORMATION
  Report Type: Report from Study
  Country: US (occurrence: US)
  Receive Date: 20151216
  Receipt Date: 20151216
  Transmission Date: 20160305
  Serious: Yes (Hospitalization, Other)
  Sender: FDA-Public Use
  Company Number: US-BAXTER-2015BAX067066

PATIENT
  Age: 49 Year
  Sex: Female
  Weight: 79.9 kg

DRUGS (6)
  1. ABT-888 [Suspect]
     Active Substance: VELIPARIB
     Indication: TRIPLE NEGATIVE BREAST CANCER
     Dosage: DAILY THROUGH CHEMOTHERAPY SEGMENT 1
     Route: 048
     Dates: start: 20150710, end: 20150820
  2. CARBOPLATIN. [Suspect]
     Active Substance: CARBOPLATIN
     Indication: TRIPLE NEGATIVE BREAST CANCER
     Dosage: AUC 6, DAY 1 OF FOUR 21-DAY CYCLES DURING CHEMOTHERAPY SEGMENT 1
     Route: 042
     Dates: start: 20150710, end: 20150821
  3. PACLITAXEL. [Suspect]
     Active Substance: PACLITAXEL
     Indication: TRIPLE NEGATIVE BREAST CANCER
     Dosage: DAY 1 OF 12 WEEKLY CYCLES DURING CHEMOTHERAPY SEGMENT 1
     Route: 042
     Dates: start: 20150710, end: 20150925
  4. CARBOPLATIN. [Suspect]
     Active Substance: CARBOPLATIN
     Dosage: AUC 5, DAY 1 OF FOUR 21-DAY CYCLES DURING CHEMOTHERAPY SEGMENT 1
     Route: 042
     Dates: start: 20150918, end: 20150918
  5. CYCLOPHOSPHAMIDE FOR INJECTION, USP [Suspect]
     Active Substance: CYCLOPHOSPHAMIDE
     Indication: TRIPLE NEGATIVE BREAST CANCER
     Dosage: DAY 1 OF 4 CYCLES DURING CHEMOTHERAPY SEGMENT 2
     Route: 042
     Dates: start: 20151015
  6. DOXORUBICIN [Suspect]
     Active Substance: DOXORUBICIN
     Indication: TRIPLE NEGATIVE BREAST CANCER
     Dosage: DAY 1 OF 4 CYCLES DURING CHEMOTHERAPY SEGMENT 2
     Route: 042
     Dates: start: 20151015

REACTIONS (3)
  - Electrocardiogram QT prolonged [Recovered/Resolved]
  - Anaemia [Recovered/Resolved]
  - Hypokalaemia [Recovered/Resolved]

NARRATIVE: CASE EVENT DATE: 20151108
